FAERS Safety Report 25710217 (Version 1)
Quarter: 2025Q3

REPORT INFORMATION
  Report Type: Spontaneous
  Country: US (occurrence: None)
  Receive Date: 20250820
  Receipt Date: 20250820
  Transmission Date: 20251020
  Serious: Yes (Death)
  Sender: FDA-CTU
  Company Number: None

PATIENT
  Age: 72 Year
  Sex: Male

DRUGS (1)
  1. PIRFENIDONE [Suspect]
     Active Substance: PIRFENIDONE
     Indication: Pulmonary arterial hypertension
     Dosage: 267MG TID ORAL
     Route: 048
     Dates: start: 20150816, end: 20250818

REACTIONS (1)
  - Cardiogenic shock [None]

NARRATIVE: CASE EVENT DATE: 20250818
